FAERS Safety Report 5646421-0 (Version None)
Quarter: 2008Q1

REPORT INFORMATION
  Report Type: 
  Country: None (occurrence: None)
  Receive Date: 20080228
  Receipt Date: 20080228
  Transmission Date: 20080703
  Serious: Yes (Other)
  Sender: FDA-Public Use
  Company Number: None

PATIENT

DRUGS (1)
  1. IBUPROFEN [Suspect]
     Dosage: 2 TABLETS
     Dates: start: 20080214

REACTIONS (6)
  - COLD SWEAT [None]
  - DEMENTIA [None]
  - DRUG SCREEN POSITIVE [None]
  - HALLUCINATION [None]
  - MALAISE [None]
  - NO REACTION ON PREVIOUS EXPOSURE TO DRUG [None]
